FAERS Safety Report 7645123 (Version 2)
Quarter: 2016Q3

REPORT INFORMATION
  Report Type: Report from Study
  Country: US (occurrence: US)
  Receive Date: 20081212
  Receipt Date: 20160902
  Transmission Date: 20161109
  Serious: Yes (Hospitalization)
  Sender: FDA-Public Use
  Company Number: US-PFIZER INC-2008015036

PATIENT
  Age: 53 Year
  Sex: Male
  Weight: 83.46 kg

DRUGS (13)
  1. NEXIUM [Concomitant]
     Active Substance: ESOMEPRAZOLE MAGNESIUM
     Dosage: QD
     Route: 048
     Dates: start: 20071213
  2. ALTACE [Concomitant]
     Active Substance: RAMIPRIL
     Dosage: QD
     Route: 048
     Dates: start: 1999
  3. VITAMIN E [Concomitant]
     Active Substance: .ALPHA.-TOCOPHEROL
     Dosage: QD
     Route: 048
     Dates: start: 1999
  4. NAPROXEN. [Suspect]
     Active Substance: NAPROXEN
     Indication: OSTEOARTHRITIS
     Dosage: UNK
     Route: 048
     Dates: start: 20071213, end: 20091224
  5. PRAVACHOL [Concomitant]
     Active Substance: PRAVASTATIN SODIUM
     Dosage: QHS
     Route: 048
     Dates: start: 1999
  6. ASA [Concomitant]
     Active Substance: ASPIRIN
     Route: 048
     Dates: start: 1999, end: 20080208
  7. LOVENOX [Concomitant]
     Active Substance: ENOXAPARIN SODIUM
     Dosage: BID
     Route: 058
     Dates: start: 20080125, end: 20080208
  8. LORTAB [Concomitant]
     Active Substance: ACETAMINOPHEN\HYDROCODONE BITARTRATE
     Dosage: PRN
     Route: 048
     Dates: start: 20080124
  9. AMLODIPINE [Concomitant]
     Active Substance: AMLODIPINE BESYLATE
     Dosage: QD
     Route: 048
     Dates: start: 1999
  10. NAPROXEN. [Suspect]
     Active Substance: NAPROXEN
     Indication: RHEUMATOID ARTHRITIS
  11. TOPROL XL [Concomitant]
     Active Substance: METOPROLOL SUCCINATE
     Dosage: BID
     Route: 048
     Dates: start: 1999
  12. NITRO [Concomitant]
     Active Substance: NITROGLYCERIN
     Dosage: PRN
     Route: 048
     Dates: start: 1999
  13. MULTIVITAMINS [Concomitant]
     Active Substance: VITAMINS
     Dosage: 1 TAB,QD
     Route: 048
     Dates: start: 1999

REACTIONS (1)
  - Infection [Not Recovered/Not Resolved]

NARRATIVE: CASE EVENT DATE: 20080218
